FAERS Safety Report 10023801 (Version 1)
Quarter: 2014Q1

REPORT INFORMATION
  Report Type: Spontaneous
  Country: US (occurrence: None)
  Receive Date: 20140319
  Receipt Date: 20140319
  Transmission Date: 20141002
  Serious: Yes (Other)
  Sender: FDA-Public Use
  Company Number: None

PATIENT
  Age: 81 Year
  Sex: Female
  Weight: 65.77 kg

DRUGS (6)
  1. CLARITHROMYCIN [Suspect]
     Indication: INFLUENZA
     Dosage: 2 PILLS A DAY FOR 14 DAYS, AM+PM, AFTER FOOD
     Route: 048
  2. CLARITHROMYCIN [Suspect]
     Indication: SINUSITIS
     Dosage: 2 PILLS A DAY FOR 14 DAYS, AM+PM, AFTER FOOD
     Route: 048
  3. LIDOCAINE [Concomitant]
  4. VITAMIN C [Concomitant]
  5. VITAMIN D [Concomitant]
  6. MULTI-OIL [Concomitant]

REACTIONS (2)
  - Blindness [None]
  - Fear [None]
